FAERS Safety Report 9179459 (Version 1)
Quarter: 2012Q4

REPORT INFORMATION
  Report Type: 
  Country: US (occurrence: US)
  Receive Date: 20121029
  Receipt Date: 20121029
  Transmission Date: 20130627
  Serious: Yes (Other)
  Sender: FDA-Public Use
  Company Number: US-ROCHE-1148641

PATIENT
  Age: 49 Year
  Sex: Male

DRUGS (2)
  1. RIBAVIRIN [Suspect]
     Indication: HEPATITIS C
     Dosage: 1000 mg in divided dose
     Route: 065
  2. PEG-INTERFERON ALFA 2A [Concomitant]
     Indication: HEPATITIS C
     Route: 065

REACTIONS (1)
  - Haemoglobinuria [Unknown]
